FAERS Safety Report 18497912 (Version 2)
Quarter: 2020Q4

REPORT INFORMATION
  Report Type: Spontaneous
  Country: NL (occurrence: NL)
  Receive Date: 20201112
  Receipt Date: 20201118
  Transmission Date: 20210114
  Serious: Yes (Other)
  Sender: FDA-Public Use
  Company Number: NL-MYLANLABS-2020M1093521

PATIENT
  Sex: Male

DRUGS (17)
  1. SUBOXONE [Interacting]
     Active Substance: BUPRENORPHINE HYDROCHLORIDE\NALOXONE HYDROCHLORIDE
     Dosage: 8 MILLIGRAM ((8 MG, QID WITH ANOTHER 8 MG DAILY IF PAIN DICTATED)
     Route: 060
     Dates: start: 2019, end: 2019
  2. PARACETAMOL [Concomitant]
     Active Substance: ACETAMINOPHEN
     Indication: PRODUCT USED FOR UNKNOWN INDICATION
     Dosage: 1000 MILLIGRAM, QID (1000 MG, QID (TABLET))
     Route: 048
     Dates: start: 20191107
  3. CLONIDINE. [Concomitant]
     Active Substance: CLONIDINE
     Dosage: 50 MCG, QD
     Route: 048
     Dates: start: 20200124
  4. DULOXETINE. [Concomitant]
     Active Substance: DULOXETINE
     Indication: PRODUCT USED FOR UNKNOWN INDICATION
     Dosage: 60 MILLIGRAM, QD
     Route: 065
  5. MODAFINIL. [Suspect]
     Active Substance: MODAFINIL
     Indication: ATTENTION DEFICIT HYPERACTIVITY DISORDER
     Dosage: 100 MILLIGRAM, QD
     Route: 048
     Dates: start: 20191106
  6. PARACETAMOL [Concomitant]
     Active Substance: ACETAMINOPHEN
     Dosage: 1000 MILLIGRAM, QID (SUGGESTED TO TAKE AT SAME TIME AS SUBOXONE)
     Route: 048
     Dates: start: 20200124
  7. CETIRIZINE [Concomitant]
     Active Substance: CETIRIZINE HYDROCHLORIDE
     Indication: PRODUCT USED FOR UNKNOWN INDICATION
     Dosage: 10 MILLIGRAM, QD (10 MG, QD)
     Route: 048
     Dates: start: 20200130
  8. CLONIDINE. [Concomitant]
     Active Substance: CLONIDINE
     Indication: HYPERHIDROSIS
     Dosage: 0.1 MILLIGRAM, QD (0.025 MILLIGRAM, QID)
     Route: 065
     Dates: start: 2020
  9. OMEPRAZOLE. [Concomitant]
     Active Substance: OMEPRAZOLE
     Dosage: 40 MILLIGRAM, BID (MSR CAPSULE))
     Route: 048
     Dates: start: 20200129
  10. BUDESONIDE. [Concomitant]
     Active Substance: BUDESONIDE
     Indication: PRODUCT USED FOR UNKNOWN INDICATION
     Dosage: 50 MICROGRAM, PRN (NASAL SPRAY))
     Route: 045
     Dates: start: 20191104
  11. MODAFINIL. [Interacting]
     Active Substance: MODAFINIL
     Dosage: 400 MILLIGRAM, QD
     Route: 048
     Dates: start: 20200131
  12. SUBOXONE [Interacting]
     Active Substance: BUPRENORPHINE HYDROCHLORIDE\NALOXONE HYDROCHLORIDE
     Indication: PAIN MANAGEMENT
     Dosage: 2 MILLIGRAM, TID
     Route: 060
     Dates: start: 20191125, end: 2019
  13. SUBOXONE [Interacting]
     Active Substance: BUPRENORPHINE HYDROCHLORIDE\NALOXONE HYDROCHLORIDE
     Dosage: 2 MILLIGRAM, QID
     Route: 060
     Dates: start: 20191122, end: 201911
  14. SUBOXONE [Interacting]
     Active Substance: BUPRENORPHINE HYDROCHLORIDE\NALOXONE HYDROCHLORIDE
     Indication: PAIN MANAGEMENT
     Dosage: 8 MILLIGRAM (HIGH DOSAGE OF 4-5 TIMES THE 8 MG)
     Route: 060
     Dates: start: 20191230, end: 202001
  15. OMEPRAZOLE. [Concomitant]
     Active Substance: OMEPRAZOLE
     Indication: PRODUCT USED FOR UNKNOWN INDICATION
     Dosage: 40 MILLIGRAM, BID (MSR CAPSULE))
     Route: 048
     Dates: start: 20191112
  16. DIAZEPAM. [Concomitant]
     Active Substance: DIAZEPAM
     Indication: MUSCULOSKELETAL DISCOMFORT
     Dosage: 1 WEEK A MONTH 100MG IN DIVIDED OVER 2 DAYS
     Route: 065
  17. PIPAMPERON [Concomitant]
     Active Substance: PIPAMPERONE HYDROCHLORIDE
     Indication: PRODUCT USED FOR UNKNOWN INDICATION
     Dosage: 20 MILLIGRAM, QD
     Route: 065

REACTIONS (9)
  - Drug interaction [Recovered/Resolved]
  - Inappropriate schedule of product administration [Recovered/Resolved]
  - Overdose [Recovered/Resolved]
  - Drug effect less than expected [Unknown]
  - Fatigue [Unknown]
  - Suicidal ideation [Recovered/Resolved]
  - Aggression [Unknown]
  - Therapeutic product effect incomplete [Unknown]
  - Depression [Not Recovered/Not Resolved]

NARRATIVE: CASE EVENT DATE: 2019
